FAERS Safety Report 17672671 (Version 1)
Quarter: 2020Q2

REPORT INFORMATION
  Report Type: Spontaneous
  Country: FR (occurrence: FR)
  Receive Date: 20200415
  Receipt Date: 20200415
  Transmission Date: 20200713
  Serious: Yes (Death)
  Sender: FDA-Public Use
  Company Number: FR-MYLANLABS-2020M1037849

PATIENT
  Age: 70 Year
  Sex: Female
  Weight: 60 kg

DRUGS (18)
  1. MORPHINE [Concomitant]
     Active Substance: MORPHINE
     Dosage: 10 UNK, LIB?RATION IMM?DIATE; TOUTES LES 6 HEURES SI DOULEURS
     Route: 048
  2. DIFFU K [Concomitant]
     Active Substance: POTASSIUM CHLORIDE
     Dosage: 3 DOSAGE FORM, QD
  3. CLOMIPRAMINE                       /00116802/ [Concomitant]
     Active Substance: CLOMIPRAMINE HYDROCHLORIDE
     Dosage: 75 MILLIGRAM, QD
     Route: 048
  4. ESOMEPRAZOLE. [Concomitant]
     Active Substance: ESOMEPRAZOLE MAGNESIUM
     Dosage: 20 MILLIGRAM, QD
     Route: 048
  5. ERBITUX [Concomitant]
     Active Substance: CETUXIMAB
     Dosage: 6 CURES CARBOPLATINE ERBITUX
     Route: 042
     Dates: end: 20200123
  6. PACLITAXEL. [Suspect]
     Active Substance: PACLITAXEL
     Indication: OROPHARYNGEAL SQUAMOUS CELL CARCINOMA
     Dosage: C1J1 (03/02/2020), C1J8 (10/02/2020)
     Route: 042
     Dates: start: 20200203, end: 20200210
  7. ALPRAZOLAM. [Concomitant]
     Active Substance: ALPRAZOLAM
     Dosage: 0.5 MILLIGRAM, QD
     Route: 048
  8. SPIRONOLACTONE. [Concomitant]
     Active Substance: SPIRONOLACTONE
     Dosage: 75 MILLIGRAM, QD
     Route: 048
  9. CARBOPLATINE [Concomitant]
     Active Substance: CARBOPLATIN
     Dosage: 6 CURES DE CARBOPLATINE ERBITUX
     Route: 042
     Dates: end: 20200123
  10. THIAMINE                           /00056102/ [Concomitant]
     Active Substance: THIAMINE HYDROCHLORIDE
     Dosage: UNK
     Route: 048
  11. PARACETAMOL [Concomitant]
     Active Substance: ACETAMINOPHEN
     Dosage: UNK
     Route: 048
  12. CARBAMAZEPINE SANDOZ [Concomitant]
     Active Substance: CARBAMAZEPINE
     Dosage: 400 MILLIGRAM, QD
     Route: 048
  13. FUROSEMIDE. [Concomitant]
     Active Substance: FUROSEMIDE
     Dosage: 20 MILLIGRAM, QD
     Route: 048
  14. LEVOTHYROX [Concomitant]
     Active Substance: LEVOTHYROXINE
     Dosage: 100 MICROGRAM, QD
     Route: 048
  15. MORPHINE [Concomitant]
     Active Substance: MORPHINE
     Dosage: LIB?RATION PROLONG?E
     Route: 048
  16. ACAMPROSATE CALCIUM. [Concomitant]
     Active Substance: ACAMPROSATE CALCIUM
     Dosage: 6 DOSAGE FORM, QD
     Route: 048
  17. PYRIDOXINE [Concomitant]
     Active Substance: PYRIDOXINE
     Route: 048
  18. LACTULOSE. [Concomitant]
     Active Substance: LACTULOSE
     Dosage: 20 GRAM, QD
     Route: 048

REACTIONS (1)
  - Interstitial lung disease [Fatal]

NARRATIVE: CASE EVENT DATE: 20200210
